FAERS Safety Report 6274055-6 (Version None)
Quarter: 2009Q3

REPORT INFORMATION
  Report Type: 
  Country: None (occurrence: None)
  Receive Date: 20090720
  Receipt Date: 20090709
  Transmission Date: 20100115
  Serious: Yes (Death, Other)
  Sender: FDA-Public Use
  Company Number: US-BAXTER-2009BH011498

PATIENT
  Sex: Female

DRUGS (1)
  1. HEPARIN SODIUM INJECTION [Suspect]
     Indication: THROMBOSIS PROPHYLAXIS
     Route: 065
     Dates: start: 20070701, end: 20070701

REACTIONS (8)
  - BALANCE DISORDER [None]
  - DEATH [None]
  - DECREASED APPETITE [None]
  - DYSPNOEA [None]
  - HYPERSENSITIVITY [None]
  - HYPOTENSION [None]
  - NAUSEA [None]
  - UNRESPONSIVE TO STIMULI [None]
